FAERS Safety Report 4977419-3 (Version None)
Quarter: 2006Q2

REPORT INFORMATION
  Report Type: 
  Country: None (occurrence: None)
  Receive Date: 20060413
  Receipt Date: 20060330
  Transmission Date: 20061013
  Serious: Yes (Hospitalization)
  Sender: FDA-Public Use
  Company Number: 2006-BP-03568RO

PATIENT
  Age: 36 Year
  Sex: Male

DRUGS (2)
  1. METHADONE HCL [Suspect]
     Indication: PAIN
     Dosage: 260MG/D (BASELINE AND BREAKTHROUGH), PO
     Route: 048
  2. STEMETIL (PROCHLOROPERAZINE) [Concomitant]

REACTIONS (8)
  - ASTHENIA [None]
  - DIARRHOEA [None]
  - INADEQUATE ANALGESIA [None]
  - NAUSEA [None]
  - PROCEDURAL COMPLICATION [None]
  - RENAL FAILURE [None]
  - STRESS [None]
  - VOMITING [None]
